FAERS Safety Report 9969049 (Version 1)
Quarter: 2014Q1

REPORT INFORMATION
  Report Type: Spontaneous
  Country: US (occurrence: US)
  Receive Date: 20140306
  Receipt Date: 20140306
  Transmission Date: 20141002
  Serious: No
  Sender: FDA-Public Use
  Company Number: US-ABBVIE-13P-163-1145173-00

PATIENT
  Sex: Female
  Weight: 48.12 kg

DRUGS (5)
  1. HUMIRA [Suspect]
     Indication: CROHN^S DISEASE
     Dates: start: 2008
  2. HUMIRA [Suspect]
     Dates: start: 20130824
  3. NEXIUM [Concomitant]
     Indication: BARRETT^S OESOPHAGUS
  4. ZOFRAN [Concomitant]
     Indication: NAUSEA
  5. TYLENOL [Concomitant]
     Indication: PRODUCT USED FOR UNKNOWN INDICATION

REACTIONS (2)
  - Device malfunction [Unknown]
  - Injection site pain [Not Recovered/Not Resolved]
